FAERS Safety Report 11416438 (Version 2)
Quarter: 2016Q3

REPORT INFORMATION
  Report Type: Spontaneous
  Country: US (occurrence: US)
  Receive Date: 20150825
  Receipt Date: 20160801
  Transmission Date: 20161109
  Serious: Yes (Other)
  Sender: FDA-Public Use
  Company Number: US-BAYER-2015-400678

PATIENT
  Sex: Male
  Weight: 58.96 kg

DRUGS (3)
  1. LEVAQUIN [Suspect]
     Active Substance: LEVOFLOXACIN
     Dosage: UNK
     Dates: start: 201212, end: 201212
  2. LEVAQUIN [Suspect]
     Active Substance: LEVOFLOXACIN
     Dosage: UNK
     Dates: start: 200612
  3. AVELOX [Suspect]
     Active Substance: MOXIFLOXACIN HYDROCHLORIDE
     Dosage: 400 MG, UNK
     Dates: start: 200407, end: 200407

REACTIONS (10)
  - Paraesthesia [None]
  - Neuropathy peripheral [None]
  - Dysstasia [None]
  - Anxiety [None]
  - Emotional distress [None]
  - Dysgeusia [None]
  - Injury [None]
  - Hypoaesthesia [None]
  - Pain [None]
  - Insomnia [None]
